FAERS Safety Report 4277442-0 (Version None)
Quarter: 2004Q1

REPORT INFORMATION
  Report Type: 
  Country: None (occurrence: None)
  Receive Date: 20040122
  Receipt Date: 20040109
  Transmission Date: 20041129
  Serious: Yes (Hospitalization)
  Sender: FDA-Public Use
  Company Number: FR-GLAXOSMITHKLINE-B0319368A

PATIENT
  Age: 80 Year
  Sex: Female

DRUGS (3)
  1. ZANTAC [Suspect]
     Route: 065
     Dates: start: 20030101
  2. RULID [Concomitant]
     Route: 065
     Dates: start: 20040101
  3. MULTIPLE DRUGS [Concomitant]
     Route: 065

REACTIONS (5)
  - AGRANULOCYTOSIS [None]
  - ASTHENIA [None]
  - LEUKOPENIA [None]
  - LUNG DISORDER [None]
  - PHARYNGOLARYNGEAL PAIN [None]
